FAERS Safety Report 23534345 (Version 1)
Quarter: 2024Q1

REPORT INFORMATION
  Report Type: Spontaneous
  Country: GB (occurrence: GB)
  Receive Date: 20240217
  Receipt Date: 20240217
  Transmission Date: 20240409
  Serious: Yes (Hospitalization)
  Sender: FDA-Public Use
  Company Number: GB-TEVA-2006-CZ-00314

PATIENT
  Age: 52 Year
  Sex: Male

DRUGS (3)
  1. CARBAMAZEPINE [Suspect]
     Active Substance: CARBAMAZEPINE
     Dosage: TABLETS BP 100MG, EPIMAZ TABLETS 100MG
     Route: 065
  2. RISPERIDONE [Suspect]
     Active Substance: RISPERIDONE
     Indication: Learning disability
     Dosage: DOSAGE TEXT: 4 MG, 2 IN 1 DAY
     Route: 048
  3. PAROXETINE [Suspect]
     Active Substance: PAROXETINE
     Route: 065

REACTIONS (1)
  - Intestinal obstruction [Unknown]
